FAERS Safety Report 9443349 (Version 1)
Quarter: 2013Q3

REPORT INFORMATION
  Report Type: Spontaneous
  Country: US (occurrence: US)
  Receive Date: 20130806
  Receipt Date: 20130806
  Transmission Date: 20140515
  Serious: Yes (Hospitalization)
  Sender: FDA-Public Use
  Company Number: US-GLAXOSMITHKLINE-A1036498A

PATIENT
  Age: 77 Year
  Sex: Male

DRUGS (1)
  1. PROMACTA [Suspect]
     Indication: THROMBOCYTOPENIA
     Dosage: 50MG PER DAY
     Route: 048
     Dates: start: 20120814

REACTIONS (5)
  - Cardiac failure [Unknown]
  - Coronary artery disease [Unknown]
  - Oropharyngeal pain [Unknown]
  - Malaise [Unknown]
  - Aortic aneurysm [Unknown]
